FAERS Safety Report 19953339 (Version 1)
Quarter: 2021Q4

REPORT INFORMATION
  Report Type: Other
  Country: MT (occurrence: MT)
  Receive Date: 20211013
  Receipt Date: 20211013
  Transmission Date: 20220304
  Serious: Yes (Hospitalization)
  Sender: FDA-Public Use
  Company Number: MT-B.BRAUN MEDICAL INC.-2120510

PATIENT
  Age: 11 Year
  Sex: Male

DRUGS (1)
  1. MEROPENEM\SODIUM CHLORIDE [Suspect]
     Active Substance: MEROPENEM\SODIUM CHLORIDE

REACTIONS (6)
  - Thrombocytopenia [None]
  - Petechiae [None]
  - Hypersensitivity [None]
  - Pyrexia [None]
  - Pruritus [None]
  - Rash maculo-papular [None]
